FAERS Safety Report 12521121 (Version 1)
Quarter: 2016Q2

REPORT INFORMATION
  Report Type: Spontaneous
  Country: None (occurrence: None)
  Receive Date: 20160630
  Receipt Date: 20160630
  Transmission Date: 20160815
  Serious: Yes (Life-Threatening)
  Sender: FDA-Public Use
  Company Number: None

PATIENT
  Age: 57 Year
  Sex: Male
  Weight: 75.75 kg

DRUGS (1)
  1. CARBOPLATIN, 600MG HOSPIRA [Suspect]
     Active Substance: CARBOPLATIN
     Indication: LUNG NEOPLASM MALIGNANT
     Dosage: 500 MG/KG EVERY 3 WEEKS
     Route: 040

REACTIONS (4)
  - Presyncope [None]
  - Erythema [None]
  - Pruritus [None]
  - Chills [None]

NARRATIVE: CASE EVENT DATE: 20160608
